FAERS Safety Report 5349917-4 (Version None)
Quarter: 2007Q2

REPORT INFORMATION
  Report Type: 
  Country: None (occurrence: None)
  Receive Date: 20070607
  Receipt Date: 20070601
  Transmission Date: 20071010
  Serious: Yes (Death, Hospitalization)
  Sender: FDA-Public Use
  Company Number: FI-PFIZER INC-2007044906

PATIENT
  Sex: Male
  Weight: 100 kg

DRUGS (11)
  1. ADRIAMYCIN PFS [Suspect]
     Indication: NON-HODGKIN'S LYMPHOMA
  2. PREDNISONE TAB [Suspect]
     Indication: NON-HODGKIN'S LYMPHOMA
  3. CYTARABINE [Suspect]
     Indication: NON-HODGKIN'S LYMPHOMA
     Dates: start: 20060316, end: 20060407
  4. CYCLOPHOSPHAMIDE [Suspect]
     Indication: NON-HODGKIN'S LYMPHOMA
  5. RITUXIMAB [Suspect]
     Indication: NON-HODGKIN'S LYMPHOMA
  6. ONCOVIN [Suspect]
     Indication: NON-HODGKIN'S LYMPHOMA
  7. ORAMET [Concomitant]
  8. EFFEXOR [Concomitant]
  9. DEPRAKINE [Concomitant]
  10. ATACAND HCT [Concomitant]
  11. ACETYLSALICYLIC ACID SRT [Concomitant]

REACTIONS (6)
  - ANAEMIA [None]
  - CONFUSIONAL STATE [None]
  - ECZEMA [None]
  - PROGRESSIVE MULTIFOCAL LEUKOENCEPHALOPATHY [None]
  - THROMBOCYTHAEMIA [None]
  - WALKING DISABILITY [None]
